FAERS Safety Report 8258024-2 (Version None)
Quarter: 2012Q2

REPORT INFORMATION
  Report Type: 
  Country: None (occurrence: None)
  Receive Date: 20120404
  Receipt Date: 20120330
  Transmission Date: 20120825
  Serious: No
  Sender: FDA-Public Use
  Company Number: US-PFIZER INC-2012027867

PATIENT
  Sex: Female

DRUGS (3)
  1. MIRALAX [Concomitant]
     Dosage: AS DIRECTED
  2. METOPROLOL TARTRATE [Concomitant]
     Dosage: 50 MG, 2X/DAY
     Route: 048
  3. NORVASC [Suspect]
     Dosage: 10 MG, DAILY
     Route: 048

REACTIONS (1)
  - NO ADVERSE EVENT [None]
